FAERS Safety Report 6272232-1 (Version None)
Quarter: 2009Q3

REPORT INFORMATION
  Report Type: 
  Country: None (occurrence: None)
  Receive Date: 20090713
  Receipt Date: 20090218
  Transmission Date: 20100115
  Serious: No
  Sender: FDA-Public Use
  Company Number: 2009BM000041

PATIENT
  Age: 22 Year
  Sex: Female
  Weight: 108.5 kg

DRUGS (5)
  1. KUVAN [Suspect]
     Indication: PHENYLKETONURIA
     Dosage: 20 MG/KG;QD;PO 10 MG/KG;QD;PO 100 MG;QD;PO 200 MG;QD;PO
     Route: 048
     Dates: start: 20081030, end: 20081113
  2. KUVAN [Suspect]
     Indication: PHENYLKETONURIA
     Dosage: 20 MG/KG;QD;PO 10 MG/KG;QD;PO 100 MG;QD;PO 200 MG;QD;PO
     Route: 048
     Dates: start: 20081114, end: 20090207
  3. KUVAN [Suspect]
     Indication: PHENYLKETONURIA
     Dosage: 20 MG/KG;QD;PO 10 MG/KG;QD;PO 100 MG;QD;PO 200 MG;QD;PO
     Route: 048
     Dates: start: 20090318, end: 20090324
  4. KUVAN [Suspect]
     Indication: PHENYLKETONURIA
     Dosage: 20 MG/KG;QD;PO 10 MG/KG;QD;PO 100 MG;QD;PO 200 MG;QD;PO
     Route: 048
     Dates: start: 20090325
  5. ATIVAN [Concomitant]

REACTIONS (2)
  - ALOPECIA [None]
  - INFLUENZA LIKE ILLNESS [None]
